APPROVED DRUG PRODUCT: AFIRMELLE
Active Ingredient: ETHINYL ESTRADIOL; LEVONORGESTREL
Strength: 0.02MG;0.1MG
Dosage Form/Route: TABLET;ORAL-28
Application: A206886 | Product #001 | TE Code: AB1
Applicant: AUROBINDO PHARMA LTD
Approved: Nov 14, 2016 | RLD: No | RS: No | Type: RX